FAERS Safety Report 11290819 (Version 1)
Quarter: 2015Q3

REPORT INFORMATION
  Report Type: Spontaneous
  Country: US (occurrence: None)
  Receive Date: 20150720
  Receipt Date: 20150720
  Transmission Date: 20151125
  Serious: Yes (Disabling, Other)
  Sender: FDA-Public Use
  Company Number: None

PATIENT
  Age: 37 Year
  Sex: Male
  Weight: 74.84 kg

DRUGS (2)
  1. IBUPROFEN. [Concomitant]
     Active Substance: IBUPROFEN
  2. CIPRO [Suspect]
     Active Substance: CIPROFLOXACIN HYDROCHLORIDE
     Indication: PROSTATITIS
     Route: 048
     Dates: start: 20120101, end: 20120113

REACTIONS (14)
  - Tendonitis [None]
  - Dry skin [None]
  - Pain in extremity [None]
  - Musculoskeletal pain [None]
  - Chondropathy [None]
  - Dry eye [None]
  - Dizziness [None]
  - Tinnitus [None]
  - Visual acuity reduced [None]
  - Feeling abnormal [None]
  - Arthralgia [None]
  - Visual impairment [None]
  - Photosensitivity reaction [None]
  - Myalgia [None]

NARRATIVE: CASE EVENT DATE: 20120102
